FAERS Safety Report 6574408-2 (Version None)
Quarter: 2010Q1

REPORT INFORMATION
  Report Type: 
  Country: None (occurrence: None)
  Receive Date: 20100209
  Receipt Date: 20100128
  Transmission Date: 20100710
  Serious: Yes (Hospitalization)
  Sender: FDA-Public Use
  Company Number: US-BIOGENIDEC-2010BI002966

PATIENT
  Age: 46 Year
  Sex: Female
  Weight: 70 kg

DRUGS (2)
  1. AVONEX [Suspect]
     Indication: MULTIPLE SCLEROSIS
     Route: 030
     Dates: start: 19990101, end: 20030101
  2. AVONEX [Suspect]
     Route: 030
     Dates: start: 20030101, end: 20081001

REACTIONS (7)
  - COAGULATION TEST ABNORMAL [None]
  - GENITAL DISORDER FEMALE [None]
  - PULMONARY EMBOLISM [None]
  - PYREXIA [None]
  - SEPSIS [None]
  - THROMBOSIS [None]
  - UTERINE HAEMORRHAGE [None]
